FAERS Safety Report 9609710 (Version 1)
Quarter: 2013Q4

REPORT INFORMATION
  Report Type: Spontaneous
  Country: US (occurrence: US)
  Receive Date: 20131009
  Receipt Date: 20131009
  Transmission Date: 20140711
  Serious: No
  Sender: FDA-Public Use
  Company Number: US-PURDUE-USA-2012-0095529

PATIENT
  Sex: Female

DRUGS (4)
  1. BUTRANS [Suspect]
     Indication: COMPLEX REGIONAL PAIN SYNDROME
     Dosage: 5 MCG, 1/WEEK
     Route: 062
     Dates: start: 20121025
  2. BUTRANS [Suspect]
     Dosage: 10 MCG, (5MCG PATCHES X2)
     Route: 062
     Dates: start: 20121102
  3. TRAMADOL (SIMILAR TO NDA 21-745) [Concomitant]
     Indication: BREAKTHROUGH PAIN
     Dosage: 50 MG, Q4H
     Route: 048
  4. CYMBALTA [Concomitant]
     Indication: PAIN
     Dosage: 60 MG, DAILY
     Route: 048

REACTIONS (4)
  - Extra dose administered [Unknown]
  - Drug ineffective [Not Recovered/Not Resolved]
  - Pain [Unknown]
  - Product physical issue [Unknown]
